FAERS Safety Report 5889256-6 (Version None)
Quarter: 2008Q3

REPORT INFORMATION
  Report Type: 
  Country: None (occurrence: None)
  Receive Date: 20080919
  Receipt Date: 20080909
  Transmission Date: 20090109
  Serious: Yes (Other)
  Sender: FDA-Public Use
  Company Number: BR-ROCHE-585901

PATIENT
  Sex: Female
  Weight: 73 kg

DRUGS (6)
  1. XENICAL [Suspect]
     Indication: WEIGHT CONTROL
     Dosage: OTHER INDICATION: CHOLESTEROL
     Route: 048
     Dates: start: 20080501
  2. HYGROTON [Concomitant]
     Route: 048
  3. CALCIUM GLUCONATE [Concomitant]
     Route: 048
  4. ALENDRONATE SODIUM [Concomitant]
     Dosage: DRUG: ALENDRONATE.
     Route: 048
  5. CLARITHROMYCIN [Concomitant]
     Route: 048
  6. DORFLEX [Concomitant]
     Indication: WEIGHT CONTROL

REACTIONS (11)
  - ANAEMIA [None]
  - BLOOD CHOLESTEROL INCREASED [None]
  - DIARRHOEA [None]
  - HYPERTENSION [None]
  - INFLUENZA [None]
  - INSOMNIA [None]
  - PAIN [None]
  - PNEUMONIA [None]
  - STEATORRHOEA [None]
  - URINARY TRACT INFECTION [None]
  - URINE ANALYSIS ABNORMAL [None]
